FAERS Safety Report 5195194-7 (Version None)
Quarter: 2006Q4

REPORT INFORMATION
  Report Type: 
  Country: None (occurrence: None)
  Receive Date: 20061229
  Receipt Date: 20060720
  Transmission Date: 20070319
  Serious: Yes (Hospitalization)
  Sender: FDA-Public Use
  Company Number: GB-PFIZER INC-2006089999

PATIENT
  Age: 26 Year
  Sex: Male
  Weight: 77 kg

DRUGS (4)
  1. AZITHROMYCIN [Suspect]
     Indication: SALMONELLOSIS
     Route: 048
     Dates: start: 20060509, end: 20060520
  2. PROCHLORPERAZINE MALEATE [Concomitant]
     Route: 048
  3. ACETAMINOPHEN W/ CODEINE [Concomitant]
     Route: 048
     Dates: start: 20060522
  4. LOPERAMIDE HCL [Concomitant]
     Route: 048
     Dates: start: 20060508

REACTIONS (2)
  - ANAEMIA HAEMOLYTIC AUTOIMMUNE [None]
  - LIVER FUNCTION TEST ABNORMAL [None]
